FAERS Safety Report 8157547-4 (Version None)
Quarter: 2012Q1

REPORT INFORMATION
  Report Type: 
  Country: None (occurrence: None)
  Receive Date: 20120222
  Receipt Date: 20110217
  Transmission Date: 20120608
  Serious: No
  Sender: FDA-Public Use
  Company Number: US-ASTRAZENECA-2011SE09319

PATIENT
  Sex: Female

DRUGS (1)
  1. ATENOLOL [Suspect]
     Route: 048

REACTIONS (1)
  - DRUG SCREEN POSITIVE [None]
